FAERS Safety Report 19376878 (Version 1)
Quarter: 2021Q2

REPORT INFORMATION
  Report Type: Spontaneous
  Country: KR (occurrence: KR)
  Receive Date: 20210604
  Receipt Date: 20210604
  Transmission Date: 20210717
  Serious: Yes (Other)
  Sender: FDA-Public Use
  Company Number: KR-ASTRAZENECA-2021A481058

PATIENT
  Age: 52 Year
  Sex: Female

DRUGS (2)
  1. IMFINZI [Suspect]
     Active Substance: DURVALUMAB
     Dosage: 620 MG, TOTAL 8 TIMES ADMINISTRATION
     Route: 042
     Dates: start: 202012, end: 20210325
  2. CYTOTOXIC ANTITUMOR AGENT [Concomitant]
     Dosage: UNKNOWN
     Route: 065

REACTIONS (1)
  - Malignant neoplasm progression [Unknown]

NARRATIVE: CASE EVENT DATE: 202103
